FAERS Safety Report 5906638-4 (Version None)
Quarter: 2008Q4

REPORT INFORMATION
  Report Type: 
  Country: None (occurrence: None)
  Receive Date: 20081002
  Receipt Date: 20080919
  Transmission Date: 20090506
  Serious: Yes (Hospitalization)
  Sender: FDA-Public Use
  Company Number: US-ELI_LILLY_AND_COMPANY-US200809001866

PATIENT
  Sex: Female

DRUGS (3)
  1. FORTEO [Suspect]
     Indication: IMPAIRED HEALING
     Dosage: UNK, UNK
     Dates: start: 20050101
  2. FORTEO [Suspect]
     Dates: start: 20080817
  3. ARTHROTEC [Concomitant]

REACTIONS (3)
  - IMPAIRED HEALING [None]
  - OSTEOARTHRITIS [None]
  - RASH MACULO-PAPULAR [None]
